FAERS Safety Report 6909011-5 (Version None)
Quarter: 2010Q3

REPORT INFORMATION
  Report Type: 
  Country: None (occurrence: None)
  Receive Date: 20100708
  Receipt Date: 20091031
  Transmission Date: 20110219
  Serious: Yes (Other)
  Sender: FDA-Public Use
  Company Number: 2008151832

PATIENT
  Age: 42 Year
  Sex: Female
  Weight: 54.4 kg

DRUGS (3)
  1. CHANTIX [Suspect]
     Indication: SMOKING CESSATION THERAPY
     Dosage: 0.5 MG, 1X/DAY
     Dates: start: 20081201, end: 20090101
  2. CHANTIX [Suspect]
     Indication: SMOKING CESSATION THERAPY
     Dosage: 0.5 MG, 1X/DAY
     Dates: start: 20090501, end: 20090101
  3. SUDAFED 12 HOUR [Concomitant]

REACTIONS (10)
  - AGGRESSION [None]
  - AGITATION [None]
  - ANGER [None]
  - DEPRESSED MOOD [None]
  - DISCOMFORT [None]
  - IRRITABILITY [None]
  - MALAISE [None]
  - RASH [None]
  - SUICIDAL IDEATION [None]
  - SWELLING [None]
